FAERS Safety Report 16860691 (Version 1)
Quarter: 2019Q3

REPORT INFORMATION
  Report Type: Spontaneous
  Country: US (occurrence: US)
  Receive Date: 20190927
  Receipt Date: 20190927
  Transmission Date: 20191005
  Serious: No
  Sender: FDA-Public Use
  Company Number: US-KARYOPHARM-2019KPT000470

PATIENT

DRUGS (1)
  1. XPOVIO [Suspect]
     Active Substance: SELINEXOR
     Indication: PLASMA CELL MYELOMA
     Dosage: 40 MG, WEEKLY
     Dates: start: 20190830

REACTIONS (9)
  - Impaired gastric emptying [Unknown]
  - Haemoglobin abnormal [Unknown]
  - Red blood cell count abnormal [Unknown]
  - Vision blurred [Unknown]
  - Hot flush [Unknown]
  - Neutrophil count abnormal [Unknown]
  - Nausea [Unknown]
  - Platelet count abnormal [Unknown]
  - White blood cell count abnormal [Unknown]
